FAERS Safety Report 7726855-0 (Version None)
Quarter: 2011Q3

REPORT INFORMATION
  Report Type: 
  Country: None (occurrence: None)
  Receive Date: 20110902
  Receipt Date: 20110823
  Transmission Date: 20111222
  Serious: Yes (Hospitalization)
  Sender: FDA-Public Use
  Company Number: NL-GENENTECH-320984

PATIENT
  Sex: Female

DRUGS (23)
  1. PREDNISONE [Suspect]
     Indication: DIFFUSE LARGE B-CELL LYMPHOMA
     Dosage: 100 MG, UNK
     Route: 048
     Dates: start: 20110510
  2. NYSTATIN [Concomitant]
     Indication: MUCOSAL INFLAMMATION
     Dosage: 4 ML, UNK
     Route: 048
     Dates: end: 20110603
  3. VALACICLOVIR [Concomitant]
     Indication: PROPHYLAXIS
     Dosage: 1000 MG, UNK
     Route: 048
     Dates: end: 20110103
  4. RITUXIMAB [Suspect]
     Indication: DIFFUSE LARGE B-CELL LYMPHOMA
     Dosage: 600 MG, UNK
     Route: 042
     Dates: start: 20110410
  5. RITUXIMAB [Suspect]
     Dosage: 600 MG, UNK
     Route: 042
     Dates: start: 20110816
  6. DOXORUBICIN HCL [Suspect]
     Dosage: 80 MG, UNK
     Route: 042
     Dates: start: 20110816
  7. NEUPOGEN [Suspect]
     Indication: DIFFUSE LARGE B-CELL LYMPHOMA
     Dosage: 6 MG, UNK
     Route: 058
     Dates: start: 20110512
  8. NAPROXEN [Concomitant]
     Dosage: 500 MG, UNK
  9. NEUPOGEN [Suspect]
     Dosage: 6 MG, UNK
     Route: 058
     Dates: start: 20110817
  10. VINCRISTINE [Suspect]
     Indication: DIFFUSE LARGE B-CELL LYMPHOMA
     Dosage: UNK
     Route: 042
     Dates: start: 20110510
  11. NAPROXEN [Concomitant]
     Indication: PAIN
     Dosage: 1000 MG, UNK
     Dates: start: 20110603
  12. CYCLOPHOSPHAMIDE [Suspect]
     Dosage: 1200 MG, UNK
     Route: 042
     Dates: start: 20110816
  13. DOXORUBICIN HCL [Suspect]
     Indication: DIFFUSE LARGE B-CELL LYMPHOMA
     Dosage: 80 MG, UNK
     Route: 042
     Dates: start: 20110510
  14. PREDNISONE [Suspect]
     Dosage: 100 MG, UNK
     Route: 048
     Dates: start: 20110816
  15. NYSTATIN [Concomitant]
     Dosage: UNK
     Route: 048
     Dates: end: 20110603
  16. VALACICLOVIR [Concomitant]
     Dosage: 500 MG, UNK
     Route: 048
  17. PANTOZOL (NETHERLANDS) [Concomitant]
     Dosage: 40 MG, UNK
  18. VINCRISTINE [Suspect]
     Dosage: 2 MG, UNK
     Route: 042
     Dates: start: 20110816
  19. PANTOZOL (NETHERLANDS) [Concomitant]
     Indication: PEPTIC ULCER
     Dosage: 40 MG, UNK
     Dates: end: 20110603
  20. ALLOPURINOL [Concomitant]
     Indication: PRODUCT USED FOR UNKNOWN INDICATION
     Dosage: 300 MG, UNK
  21. COTRIM [Concomitant]
     Indication: PROPHYLAXIS
     Dosage: 480 MG, UNK
  22. CYCLOPHOSPHAMIDE [Suspect]
     Indication: DIFFUSE LARGE B-CELL LYMPHOMA
     Dosage: 1200 MG, UNK
     Route: 042
     Dates: start: 20110510
  23. LACTULOSE [Concomitant]
     Indication: CONSTIPATION
     Dosage: 15 ML, UNK

REACTIONS (1)
  - CONSTIPATION [None]
